FAERS Safety Report 9032636 (Version 1)
Quarter: 2013Q1

REPORT INFORMATION
  Report Type: Spontaneous
  Country: US (occurrence: US)
  Receive Date: 20130125
  Receipt Date: 20130125
  Transmission Date: 20140127
  Serious: Yes (Other)
  Sender: FDA-Public Use
  Company Number: US-SANOFI-AVENTIS-2013SA004057

PATIENT
  Age: 55 Year
  Sex: Male

DRUGS (7)
  1. PLAVIX [Suspect]
     Indication: THROMBOSIS PROPHYLAXIS
     Route: 048
     Dates: start: 200812
  2. METOPROLOL [Suspect]
  3. METOPROLOL [Suspect]
  4. AMLODIPINE BESILATE/OLMESARTAN MEDOXOMIL [Concomitant]
  5. ASA [Concomitant]
  6. NIASPAN [Concomitant]
  7. CRESTOR /UNK/ [Concomitant]

REACTIONS (1)
  - Bradycardia [Recovered/Resolved]
